FAERS Safety Report 9717952 (Version 2)
Quarter: 2013Q4

REPORT INFORMATION
  Report Type: Spontaneous
  Country: US (occurrence: US)
  Receive Date: 20131125
  Receipt Date: 20131125
  Transmission Date: 20140711
  Serious: No
  Sender: FDA-Public Use
  Company Number: US-VIVUS-2013V1000389

PATIENT
  Age: 63 Year
  Sex: Female
  Weight: 139.83 kg

DRUGS (16)
  1. QSYMIA 3.75MG/23MG [Suspect]
     Indication: WEIGHT DECREASED
     Route: 048
     Dates: start: 20130509, end: 201305
  2. QSYMIA 7.5MG/46MG [Suspect]
     Indication: WEIGHT DECREASED
     Route: 048
     Dates: start: 201305
  3. DIOVAN [Concomitant]
     Indication: BLOOD PRESSURE
     Route: 048
  4. EFFEXOR ER [Concomitant]
     Indication: DEPRESSION
     Route: 048
  5. TRIAMTERENE HCT [Concomitant]
     Indication: PRODUCT USED FOR UNKNOWN INDICATION
     Dosage: 35.5/25MG
     Route: 048
  6. PREVACID [Concomitant]
     Indication: ABDOMINAL DISCOMFORT
     Route: 048
  7. ANTI DIARRHEA MEDICATION [Concomitant]
     Indication: DIARRHOEA
     Route: 048
  8. LORTAB [Concomitant]
     Indication: PRODUCT USED FOR UNKNOWN INDICATION
     Route: 048
  9. IBURPROFEN [Concomitant]
     Indication: BACK PAIN
     Route: 048
  10. FLEXERIL [Concomitant]
     Indication: PRODUCT USED FOR UNKNOWN INDICATION
     Route: 048
  11. BIOTIN [Concomitant]
     Indication: PRODUCT USED FOR UNKNOWN INDICATION
     Route: 048
  12. OSTEO BI FLEX [Concomitant]
     Indication: ARTHRALGIA
     Route: 048
  13. MEGARED D3 [Concomitant]
     Indication: VITAMIN SUPPLEMENTATION
     Route: 048
     Dates: start: 2013
  14. BAREFOOT CORAL CALCIUM [Concomitant]
     Indication: MINERAL SUPPLEMENTATION
     Route: 048
  15. ZYRTEC [Concomitant]
     Indication: PRURITUS
     Route: 048
  16. UNSPECIFIED DIURETIC PILL [Concomitant]
     Indication: DIURETIC THERAPY
     Dosage: 37.5MG/25MG
     Route: 048

REACTIONS (4)
  - Burning sensation [Not Recovered/Not Resolved]
  - Pruritus [Recovered/Resolved]
  - Local swelling [Not Recovered/Not Resolved]
  - Paraesthesia [Not Recovered/Not Resolved]
